FAERS Safety Report 13955022 (Version 1)
Quarter: 2017Q3

REPORT INFORMATION
  Report Type: Spontaneous
  Country: US (occurrence: US)
  Receive Date: 20170911
  Receipt Date: 20170911
  Transmission Date: 20171128
  Serious: No
  Sender: FDA-Public Use
  Company Number: None

PATIENT
  Age: 87 Year
  Sex: Female

DRUGS (1)
  1. CLOBETASOL OINTMENT [Suspect]
     Active Substance: CLOBETASOL

REACTIONS (3)
  - Burning sensation [None]
  - Pain [None]
  - Treatment failure [None]

NARRATIVE: CASE EVENT DATE: 20170911
